FAERS Safety Report 12871811 (Version 2)
Quarter: 2016Q4

REPORT INFORMATION
  Report Type: Spontaneous
  Country: US (occurrence: US)
  Receive Date: 20161021
  Receipt Date: 20161115
  Transmission Date: 20170207
  Serious: No
  Sender: FDA-Public Use
  Company Number: US-TAIHO ONCOLOGY INC-EU-2016-02103

PATIENT
  Sex: Female

DRUGS (16)
  1. LIPITOR [Concomitant]
     Active Substance: ATORVASTATIN CALCIUM
     Dosage: NI
  2. FLONASE [Concomitant]
     Active Substance: FLUTICASONE PROPIONATE
     Dosage: NI
  3. POTASSIUM [Concomitant]
     Active Substance: POTASSIUM
     Dosage: NI
  4. OCUVITE [Concomitant]
     Active Substance: VITAMINS
     Dosage: NI
  5. ALLOPURINOL. [Concomitant]
     Active Substance: ALLOPURINOL
     Dosage: NI
  6. LAMICTAL [Concomitant]
     Active Substance: LAMOTRIGINE
     Dosage: NI
  7. LASIX [Concomitant]
     Active Substance: FUROSEMIDE
     Dosage: NI
  8. LONSURF [Suspect]
     Active Substance: TIPIRACIL HYDROCHLORIDE\TRIFLURIDINE
     Indication: COLON CANCER
     Route: 048
     Dates: start: 20160706, end: 20161103
  9. ISOSORBIDE MONONITRATE. [Concomitant]
     Active Substance: ISOSORBIDE MONONITRATE
     Dosage: NI
  10. COLECALCIFEROL [Concomitant]
     Active Substance: CHOLECALCIFEROL
     Dosage: NI
  11. NIFEDIPINE. [Concomitant]
     Active Substance: NIFEDIPINE
     Dosage: NI
  12. CARVEDILOL. [Concomitant]
     Active Substance: CARVEDILOL
     Dosage: NI
  13. CLONIDINE. [Concomitant]
     Active Substance: CLONIDINE
     Dosage: NI
  14. ELIQUIS [Concomitant]
     Active Substance: APIXABAN
     Dosage: NI
  15. HYDRALAZINE [Concomitant]
     Active Substance: HYDRALAZINE HYDROCHLORIDE
     Dosage: NI
  16. FERREX [Concomitant]
     Dosage: NI

REACTIONS (5)
  - Decreased appetite [Unknown]
  - Decreased immune responsiveness [Unknown]
  - Nausea [Not Recovered/Not Resolved]
  - Rhinorrhoea [Unknown]
  - Fatigue [Not Recovered/Not Resolved]

NARRATIVE: CASE EVENT DATE: 2016
